FAERS Safety Report 9310413 (Version 3)
Quarter: 2013Q3

REPORT INFORMATION
  Report Type: Spontaneous
  Country: US (occurrence: US)
  Receive Date: 20130527
  Receipt Date: 20130719
  Transmission Date: 20140515
  Serious: No
  Sender: FDA-Public Use
  Company Number: US-PFIZER INC-2013159921

PATIENT
  Age: 48 Year
  Sex: Female
  Weight: 59.4 kg

DRUGS (3)
  1. CHANTIX [Suspect]
     Indication: SMOKING CESSATION THERAPY
     Dosage: UNK, DAILY
     Dates: end: 2012
  2. TOVIAZ [Concomitant]
     Dosage: 4 MG, DAILY
  3. PAROXETINE [Concomitant]
     Dosage: 20 MG, DAILY

REACTIONS (1)
  - Malaise [Unknown]
